FAERS Safety Report 17919167 (Version 8)
Quarter: 2023Q4

REPORT INFORMATION
  Report Type: Other
  Country: AU (occurrence: AU)
  Receive Date: 20200619
  Receipt Date: 20231004
  Transmission Date: 20240109
  Serious: Yes (Hospitalization, Other)
  Sender: FDA-Public Use
  Company Number: AU-TOLMAR, INC.-20AU021662

PATIENT
  Sex: Male

DRUGS (3)
  1. ELIGARD [Suspect]
     Active Substance: LEUPROLIDE ACETATE
     Indication: Prostate cancer
     Dosage: 22.5 MILLIGRAM, Q 3 MONTH
     Route: 058
     Dates: start: 20200308
  2. DENOSUMAB [Concomitant]
     Active Substance: DENOSUMAB
     Indication: Product used for unknown indication
     Dosage: 1/12 XGEVA S/C
     Route: 058
  3. XGEVA [Concomitant]
     Active Substance: DENOSUMAB
     Indication: Product used for unknown indication
     Dosage: UNK, Q 12 HR
     Route: 058

REACTIONS (8)
  - Squamous cell carcinoma of skin [Not Recovered/Not Resolved]
  - Prostatic specific antigen increased [Unknown]
  - Metastases to bone [Unknown]
  - Somnolence [Unknown]
  - Weight decreased [Recovering/Resolving]
  - Decreased appetite [Recovering/Resolving]
  - Dyspnoea [Unknown]
  - Asthenia [Not Recovered/Not Resolved]
